FAERS Safety Report 5428726-1 (Version None)
Quarter: 2007Q3

REPORT INFORMATION
  Report Type: 
  Country: None (occurrence: None)
  Receive Date: 20070731
  Receipt Date: 20070514
  Transmission Date: 20080115
  Serious: No
  Sender: FDA-Public Use
  Company Number: US200704005345

PATIENT
  Age: 76 Year
  Sex: Male

DRUGS (17)
  1. BYETTA [Suspect]
     Indication: TYPE 2 DIABETES MELLITUS
     Dosage: 5 UG, 2/D , SUBCUTANEOUS
     Route: 058
     Dates: start: 20070226, end: 20070418
  2. EXENATIDE 5MCG PEN, DISPOSABLE DEVICE (EXENATIDE PEN (5MCG)) PEN, DISP [Concomitant]
  3. HUMALOG [Concomitant]
  4. LASIX [Concomitant]
  5. ACCUPRIL [Concomitant]
  6. ADALAT CC [Concomitant]
  7. GLUCOPHAGE XR (METFORMIN HYDROCHLORIDE) [Concomitant]
  8. ASPIRIN [Concomitant]
  9. LANTUS [Concomitant]
  10. PREVACID [Concomitant]
  11. FLOMAX [Concomitant]
  12. PROBIOTICA (LACTOBACILLUS REUTER) [Concomitant]
  13. DARVOCET-N 100 [Concomitant]
  14. OXYGEN (OXYGEN) [Concomitant]
  15. CALCIUM W/VITAMIN D NOS (CALCIUM, VITAMIN D NOS) [Concomitant]
  16. NITROGLYCERIN [Concomitant]
  17. LIPITOR [Concomitant]

REACTIONS (4)
  - FIBRIN D DIMER INCREASED [None]
  - JOINT SWELLING [None]
  - MYALGIA [None]
  - OEDEMA PERIPHERAL [None]
